FAERS Safety Report 24986670 (Version 4)
Quarter: 2025Q3

REPORT INFORMATION
  Report Type: Report from Study
  Country: CN (occurrence: CN)
  Receive Date: 20250219
  Receipt Date: 20250903
  Transmission Date: 20251020
  Serious: Yes (Hospitalization)
  Sender: EISAI
  Company Number: CN-Eisai-EC-2025-184126

PATIENT
  Age: 52 Year
  Sex: Female
  Weight: 43 kg

DRUGS (13)
  1. ERIBULIN [Suspect]
     Active Substance: ERIBULIN
     Indication: Breast cancer
     Route: 042
     Dates: start: 20250117, end: 20250207
  2. ERIBULIN [Suspect]
     Active Substance: ERIBULIN
     Route: 042
     Dates: start: 20250307
  3. CAPECITABINE [Suspect]
     Active Substance: CAPECITABINE
     Indication: Breast cancer
     Dosage: D1-D14/Q3W
     Route: 048
     Dates: start: 20250117, end: 20250130
  4. CAPECITABINE [Suspect]
     Active Substance: CAPECITABINE
     Dosage: D1-D14/Q3W
     Route: 048
     Dates: start: 20250207, end: 20250211
  5. CAPECITABINE [Suspect]
     Active Substance: CAPECITABINE
     Dosage: D1-D14/Q3W
     Route: 048
     Dates: start: 20250307
  6. ROSUVASTATIN CALCIUM [Concomitant]
     Active Substance: ROSUVASTATIN CALCIUM
     Indication: Lipids increased
     Route: 048
     Dates: start: 2023
  7. BICYCLOL [Concomitant]
     Active Substance: BICYCLOL
     Indication: Hepatobiliary disorder prophylaxis
     Route: 048
     Dates: start: 20241214, end: 20250315
  8. PIOGLITAZONE HYDROCHLORIDE AND METFORMIN HYDROCHLORIDE [Concomitant]
     Active Substance: METFORMIN HYDROCHLORIDE\PIOGLITAZONE HYDROCHLORIDE
     Indication: Blood glucose increased
     Route: 048
     Dates: start: 20250110, end: 20250212
  9. INSULIN DEGLUDEC [Concomitant]
     Active Substance: INSULIN DEGLUDEC
     Indication: Blood glucose increased
     Dosage: 18-20 UNITS
     Dates: start: 20250111, end: 20250211
  10. INSULIN ASPART [Concomitant]
     Active Substance: INSULIN ASPART
     Indication: Blood glucose increased
     Dosage: 18-20 UNITS
     Dates: start: 20250111, end: 20250211
  11. ACARBOSE [Concomitant]
     Active Substance: ACARBOSE
     Indication: Blood glucose increased
     Route: 048
     Dates: start: 20250118, end: 20250211
  12. METHYLPREDNISOLONE [Concomitant]
     Active Substance: METHYLPREDNISOLONE
     Indication: Interstitial lung disease
     Route: 048
     Dates: start: 20250123, end: 20250208
  13. INSULIN HUMAN [Concomitant]
     Active Substance: INSULIN HUMAN
     Indication: Blood glucose increased
     Route: 042
     Dates: start: 20250125, end: 20250125

REACTIONS (1)
  - Pneumonitis [Recovering/Resolving]

NARRATIVE: CASE EVENT DATE: 20250208
